FAERS Safety Report 9740323 (Version 1)
Quarter: 2013Q4

REPORT INFORMATION
  Report Type: Spontaneous
  Country: US (occurrence: US)
  Receive Date: 20131209
  Receipt Date: 20131209
  Transmission Date: 20140711
  Serious: No
  Sender: FDA-Public Use
  Company Number: US-BIOGENIDEC-2013BI096939

PATIENT
  Sex: Female

DRUGS (16)
  1. TECFIDERA [Suspect]
     Indication: PRODUCT USED FOR UNKNOWN INDICATION
     Route: 048
     Dates: start: 20130708, end: 20130715
  2. TECFIDERA [Suspect]
     Indication: PRODUCT USED FOR UNKNOWN INDICATION
     Route: 048
     Dates: start: 20130716
  3. VITAMIN D [Concomitant]
  4. PROZAC [Concomitant]
  5. MELATONIN [Concomitant]
  6. ARICEPT [Concomitant]
  7. OXYBUTYNIN [Concomitant]
  8. SUPER OMEGA-3 [Concomitant]
  9. CYANOCOBALAMIN [Concomitant]
  10. LIPITOR [Concomitant]
  11. NEURONTIN [Concomitant]
  12. SINGULAIR [Concomitant]
  13. LORATADINE [Concomitant]
  14. OMEPRAZOLE [Concomitant]
  15. ASPIRIN [Concomitant]
  16. TOPROL [Concomitant]

REACTIONS (2)
  - Nausea [Unknown]
  - Vomiting [Unknown]
